FAERS Safety Report 24819400 (Version 3)
Quarter: 2025Q2

REPORT INFORMATION
  Report Type: Spontaneous
  Country: US (occurrence: US)
  Receive Date: 20250108
  Receipt Date: 20250410
  Transmission Date: 20250716
  Serious: Yes (Other)
  Sender: PFIZER
  Company Number: US-PFIZER INC-202400327173

PATIENT
  Age: 30 Year
  Sex: Female

DRUGS (12)
  1. ADCETRIS [Suspect]
     Active Substance: BRENTUXIMAB VEDOTIN
     Indication: Hodgkin^s disease nodular sclerosis
     Dates: start: 20240729
  2. ADCETRIS [Suspect]
     Active Substance: BRENTUXIMAB VEDOTIN
  3. ADCETRIS [Suspect]
     Active Substance: BRENTUXIMAB VEDOTIN
     Dosage: 80 MG INFUSION EVERY 3 WEEKS
  4. GEMCITABINE [Concomitant]
     Active Substance: GEMCITABINE
  5. VINORELBINE [Concomitant]
     Active Substance: VINORELBINE TARTRATE
  6. DOXORUBICIN [Concomitant]
     Active Substance: DOXORUBICIN
  7. REGLAN [Concomitant]
     Active Substance: METOCLOPRAMIDE HYDROCHLORIDE
     Dosage: 3 TIMES DAILY BEFORE MEALS
  8. ZYPREXA [Concomitant]
     Active Substance: OLANZAPINE
  9. SENNA LEAF [Concomitant]
     Active Substance: SENNA LEAF
     Indication: Constipation
  10. SENNA LEAF [Concomitant]
     Active Substance: SENNA LEAF
     Dosage: 2 DF, 2X/DAY
  11. HALDOL [Concomitant]
     Active Substance: HALOPERIDOL
  12. ACYCLOVIR [Concomitant]
     Active Substance: ACYCLOVIR
     Indication: Prophylaxis

REACTIONS (15)
  - Neuropathy peripheral [Recovering/Resolving]
  - Nausea [Recovering/Resolving]
  - Vomiting [Recovering/Resolving]
  - Weight decreased [Unknown]
  - Abdominal pain [Recovering/Resolving]
  - Dyspepsia [Recovering/Resolving]
  - Oesophagitis [Unknown]
  - Oesophageal disorder [Unknown]
  - Hypertransaminasaemia [Recovered/Resolved]
  - Anaemia [Unknown]
  - Fatigue [Unknown]
  - Tachycardia [Unknown]
  - Hypertension [Not Recovered/Not Resolved]
  - Polycystic ovaries [Unknown]
  - Off label use [Unknown]
